FAERS Safety Report 13206083 (Version 1)
Quarter: 2017Q1

REPORT INFORMATION
  Report Type: Spontaneous
  Country: US (occurrence: US)
  Receive Date: 20170209
  Receipt Date: 20170209
  Transmission Date: 20170428
  Serious: Yes (Hospitalization)
  Sender: FDA-Public Use
  Company Number: US-PFIZER INC-2017056562

PATIENT
  Age: 81 Year
  Sex: Female
  Weight: 82 kg

DRUGS (3)
  1. REVATIO [Suspect]
     Active Substance: SILDENAFIL CITRATE
     Indication: PULMONARY HYPERTENSION
     Dosage: 60 MG, 3X/DAY
     Route: 048
     Dates: start: 2009
  2. CARVEDILOL. [Concomitant]
     Active Substance: CARVEDILOL
     Indication: PALPITATIONS
     Dosage: 3.125 MG, 2X/DAY (HALF OF 6.25MG TABLET)
  3. OXYCODONE [Concomitant]
     Active Substance: OXYCODONE
     Indication: ARTHRITIS
     Dosage: 15 MG, 4X/DAY

REACTIONS (3)
  - Product use issue [Unknown]
  - Faecaloma [Recovering/Resolving]
  - Constipation [Recovering/Resolving]

NARRATIVE: CASE EVENT DATE: 201701
